FAERS Safety Report 4348344-6 (Version None)
Quarter: 2004Q2

REPORT INFORMATION
  Report Type: 
  Country: None (occurrence: None)
  Receive Date: 20040427
  Receipt Date: 20040414
  Transmission Date: 20050107
  Serious: Yes (Other)
  Sender: FDA-Public Use
  Company Number: NL-GLAXOSMITHKLINE-B0330005A

PATIENT

DRUGS (2)
  1. ROPINIROLE HYDROCHLORIDE [Suspect]
     Route: 048
  2. SYMMETREL [Concomitant]
     Route: 048

REACTIONS (5)
  - HEADACHE [None]
  - HYPOKINESIA [None]
  - MOBILITY DECREASED [None]
  - SOMNOLENCE [None]
  - URINARY INCONTINENCE [None]
